FAERS Safety Report 7376175-1 (Version None)
Quarter: 2011Q1

REPORT INFORMATION
  Report Type: 
  Country: None (occurrence: None)
  Receive Date: 20110325
  Receipt Date: 20110311
  Transmission Date: 20110831
  Serious: Yes (Hospitalization)
  Sender: FDA-Public Use
  Company Number: CA-JNJFOC-20110306713

PATIENT
  Sex: Female
  Weight: 82 kg

DRUGS (6)
  1. REMICADE [Suspect]
     Indication: CROHN'S DISEASE
     Route: 042
  2. AVALIDE [Concomitant]
     Route: 065
  3. ASACOL [Concomitant]
     Route: 065
  4. SYMBICORT [Concomitant]
     Route: 065
  5. ASPIRIN [Concomitant]
     Route: 065
  6. IMURAN [Concomitant]
     Route: 065

REACTIONS (1)
  - FISTULA [None]
